FAERS Safety Report 13840362 (Version 2)
Quarter: 2017Q3

REPORT INFORMATION
  Report Type: Spontaneous
  Country: JP (occurrence: JP)
  Receive Date: 20170807
  Receipt Date: 20170920
  Transmission Date: 20171127
  Serious: Yes (Other)
  Sender: FDA-Public Use
  Company Number: JP-CELGENEUS-JPN-20170708650

PATIENT
  Age: 58 Year
  Sex: Male

DRUGS (2)
  1. OTEZLA [Suspect]
     Active Substance: APREMILAST
     Indication: PSORIASIS
     Dosage: 10-60MG
     Route: 048
     Dates: start: 20170606, end: 2017
  2. OTEZLA [Suspect]
     Active Substance: APREMILAST
     Dosage: 60 MILLIGRAM
     Route: 048
     Dates: start: 2017, end: 20170704

REACTIONS (4)
  - Pharyngeal oedema [Recovered/Resolved]
  - Gingival swelling [Recovered/Resolved]
  - Peripheral swelling [Recovered/Resolved]
  - Faeces soft [Recovered/Resolved]

NARRATIVE: CASE EVENT DATE: 20170620
